FAERS Safety Report 7275505-9 (Version None)
Quarter: 2011Q1

REPORT INFORMATION
  Report Type: 
  Country: None (occurrence: None)
  Receive Date: 20110204
  Receipt Date: 20110127
  Transmission Date: 20110831
  Serious: Yes (Other)
  Sender: FDA-Public Use
  Company Number: US-GENENTECH-311868

PATIENT
  Age: 30 Year
  Sex: Female
  Weight: 62.132 kg

DRUGS (2)
  1. SINGULAIR [Concomitant]
     Indication: PRODUCT USED FOR UNKNOWN INDICATION
     Dosage: 10 MG, QD
  2. XOLAIR [Suspect]
     Indication: ASTHMA
     Dosage: 300 MG, Q6W
     Route: 058
     Dates: start: 20070101, end: 20101213

REACTIONS (2)
  - ABORTION SPONTANEOUS [None]
  - DRUG EXPOSURE DURING PREGNANCY [None]
